FAERS Safety Report 5320293-6 (Version None)
Quarter: 2007Q2

REPORT INFORMATION
  Report Type: 
  Country: None (occurrence: None)
  Receive Date: 20070503
  Receipt Date: 20070503
  Transmission Date: 20071010
  Serious: Yes (Hospitalization)
  Sender: FDA-Public Use
  Company Number: None

PATIENT
  Sex: Male

DRUGS (1)
  1. OPTIRAY 320 [Suspect]
     Indication: BIOPSY LIVER
     Dosage: 125 ML ONCE IV
     Route: 042
     Dates: start: 20070426, end: 20070426

REACTIONS (1)
  - URTICARIA [None]
